FAERS Safety Report 5643676-3 (Version None)
Quarter: 2008Q1

REPORT INFORMATION
  Report Type: 
  Country: None (occurrence: None)
  Receive Date: 20080228
  Receipt Date: 20080216
  Transmission Date: 20080703
  Serious: Yes (Death, Other)
  Sender: FDA-Public Use
  Company Number: US-PFIZER INC-2008001321

PATIENT
  Sex: Female
  Weight: 76.2 kg

DRUGS (23)
  1. CHANTIX [Suspect]
     Indication: SMOKING CESSATION THERAPY
  2. RELPAX [Suspect]
     Indication: MIGRAINE
  3. OXYBUTYNIN CHLORIDE [Suspect]
  4. BUPROPION HCL [Concomitant]
  5. BUSPAR [Concomitant]
  6. CLONAZEPAM [Concomitant]
  7. CODEINE SUL TAB [Concomitant]
  8. COLESTYRAMINE [Concomitant]
  9. LOMOTIL [Concomitant]
  10. ERGOCALCIFEROL [Concomitant]
  11. ALLEGRA [Concomitant]
  12. ADVAIR DISKUS 100/50 [Concomitant]
  13. MONOPRIL [Concomitant]
  14. KYTRIL [Concomitant]
  15. ATIVAN [Concomitant]
  16. ZYPREXA [Concomitant]
  17. PRILOSEC [Concomitant]
  18. VITAMIN B-12 [Concomitant]
  19. PRAVASTATIN [Concomitant]
  20. AMBIEN [Concomitant]
  21. TENORMIN [Concomitant]
  22. ACETYLSALICYLIC ACID [Concomitant]
  23. COMBIVENT [Concomitant]
     Indication: ASTHMA

REACTIONS (7)
  - ABNORMAL DREAMS [None]
  - CARDIOPULMONARY FAILURE [None]
  - COMPLETED SUICIDE [None]
  - CONFUSIONAL STATE [None]
  - DEPRESSED MOOD [None]
  - OVERDOSE [None]
  - RESPIRATORY FAILURE [None]
